FAERS Safety Report 21877508 (Version 1)
Quarter: 2023Q1

REPORT INFORMATION
  Report Type: Spontaneous
  Country: US (occurrence: US)
  Receive Date: 20230118
  Receipt Date: 20230118
  Transmission Date: 20230417
  Serious: Yes (Hospitalization)
  Sender: FDA-Public Use
  Company Number: US-SA-SAC20230116000184

PATIENT
  Age: 79 Year
  Sex: Male

DRUGS (1)
  1. AMBIEN [Suspect]
     Active Substance: ZOLPIDEM TARTRATE
     Dosage: 10 MG, QD
     Route: 065

REACTIONS (6)
  - Fall [Unknown]
  - Limb injury [Unknown]
  - Drug ineffective [Unknown]
  - Hepatic enzyme increased [Unknown]
  - Skin discolouration [Unknown]
  - Insomnia [Unknown]
